FAERS Safety Report 14414284 (Version 2)
Quarter: 2023Q2

REPORT INFORMATION
  Report Type: Spontaneous
  Country: FR (occurrence: FR)
  Receive Date: 20180120
  Receipt Date: 20230503
  Transmission Date: 20230722
  Serious: Yes (Other)
  Sender: FDA-Public Use
  Company Number: FR-SUN PHARMACEUTICAL INDUSTRIES LTD-2018RR-160526

PATIENT
  Age: 79 Year
  Sex: Male
  Weight: 70 kg

DRUGS (14)
  1. ATORVASTATIN [Suspect]
     Active Substance: ATORVASTATIN
     Indication: Myocardial infarction
     Dosage: 80 MG
     Route: 048
     Dates: start: 20160615, end: 20170613
  2. ATORVASTATIN [Suspect]
     Active Substance: ATORVASTATIN
     Indication: Myocardial infarction
  3. PANTOPRAZOLE [Suspect]
     Active Substance: PANTOPRAZOLE
     Indication: Myocardial infarction
     Dosage: 20 MG, UNK
     Route: 048
     Dates: start: 201606
  4. PANTOPRAZOLE [Suspect]
     Active Substance: PANTOPRAZOLE
     Indication: Myocardial infarction
  5. CANDESARTAN [Suspect]
     Active Substance: CANDESARTAN
     Indication: Myocardial infarction
     Dosage: 1 DF
     Route: 048
     Dates: start: 20170322
  6. TICAGRELOR [Suspect]
     Active Substance: TICAGRELOR
     Indication: Myocardial infarction
     Dosage: 2 DF, UNK
     Route: 048
     Dates: start: 201606
  7. BISOPROLOL FUMARATE [Suspect]
     Active Substance: BISOPROLOL FUMARATE
     Indication: Myocardial infarction
     Dosage: 1 DF
     Route: 048
     Dates: start: 201606
  8. KARDEGIC [Suspect]
     Active Substance: ASPIRIN DL-LYSINE
     Indication: Myocardial infarction
     Dosage: 1 DOSAGE FORM
     Route: 048
     Dates: start: 201606
  9. KARDEGIC [Suspect]
     Active Substance: ASPIRIN DL-LYSINE
     Indication: Myocardial infarction
  10. LIPTRUZET [Suspect]
     Active Substance: ATORVASTATIN CALCIUM\EZETIMIBE
     Indication: Myocardial infarction
     Dosage: 1 DF, UNK
     Route: 048
     Dates: start: 20170613
  11. CANDESARTAN [Suspect]
     Active Substance: CANDESARTAN
     Indication: Myocardial infarction
     Route: 065
  12. LIPTRUZET [Suspect]
     Active Substance: ATORVASTATIN CALCIUM\EZETIMIBE
     Indication: Myocardial infarction
     Route: 065
  13. BISOPROLOL FUMARATE [Suspect]
     Active Substance: BISOPROLOL FUMARATE
     Indication: Myocardial infarction
     Route: 065
  14. TICAGRELOR [Suspect]
     Active Substance: TICAGRELOR
     Indication: Myocardial infarction
     Route: 065

REACTIONS (2)
  - Vertigo [Recovered/Resolved]
  - Pain in extremity [Not Recovered/Not Resolved]

NARRATIVE: CASE EVENT DATE: 20160101
